FAERS Safety Report 20902056 (Version 4)
Quarter: 2022Q3

REPORT INFORMATION
  Report Type: Spontaneous
  Country: US (occurrence: US)
  Receive Date: 20220601
  Receipt Date: 20220707
  Transmission Date: 20221026
  Serious: Yes (Hospitalization, Other)
  Sender: FDA-Public Use
  Company Number: US-SUNOVION-2022SUN001682

PATIENT
  Age: 65 Year
  Sex: Female
  Weight: 88.3 kg

DRUGS (6)
  1. APTIOM [Suspect]
     Active Substance: ESLICARBAZEPINE ACETATE
     Indication: Sturge-Weber syndrome
     Dosage: UNK
     Route: 048
     Dates: start: 201509
  2. APTIOM [Suspect]
     Active Substance: ESLICARBAZEPINE ACETATE
     Indication: Postictal paralysis
     Dosage: 600 MG, BID
     Route: 048
     Dates: start: 20180328, end: 202204
  3. APTIOM [Suspect]
     Active Substance: ESLICARBAZEPINE ACETATE
     Indication: Epilepsy
     Dosage: 900 MG, QD
     Route: 048
     Dates: start: 202204
  4. APTIOM [Suspect]
     Active Substance: ESLICARBAZEPINE ACETATE
     Indication: Seizure
  5. KEPPRA [Concomitant]
     Active Substance: LEVETIRACETAM
     Indication: Seizure
     Dosage: 1500 MG, BID (2 750 MG PILLS TWICE DAILY))
     Route: 065
  6. PHENOBARBITAL [Concomitant]
     Active Substance: PHENOBARBITAL
     Indication: Seizure
     Dosage: UNK
     Route: 065

REACTIONS (13)
  - Coma [Recovered/Resolved]
  - Seizure [Unknown]
  - Loss of consciousness [Unknown]
  - Dehydration [Unknown]
  - Hyponatraemia [Not Recovered/Not Resolved]
  - Blood sodium decreased [Not Recovered/Not Resolved]
  - Illness [Recovered/Resolved]
  - Menopausal symptoms [Not Recovered/Not Resolved]
  - Respiratory syncytial virus infection [Unknown]
  - Osteoporosis [Unknown]
  - Glucose tolerance impaired [Unknown]
  - Inappropriate schedule of product administration [Unknown]
  - Therapy interrupted [Unknown]

NARRATIVE: CASE EVENT DATE: 20200307
